FAERS Safety Report 4366723-8 (Version None)
Quarter: 2004Q2

REPORT INFORMATION
  Report Type: 
  Country: None (occurrence: None)
  Receive Date: 20040527
  Receipt Date: 20040520
  Transmission Date: 20050107
  Serious: Yes (Disabling)
  Sender: FDA-Public Use
  Company Number: US-MERCK-0405USA01531

PATIENT
  Age: 41 Year
  Sex: Male

DRUGS (4)
  1. PLAVIX [Concomitant]
     Route: 065
  2. NEXIUM [Concomitant]
     Route: 065
  3. AVANDIA [Concomitant]
     Route: 065
  4. ZOCOR [Suspect]
     Indication: DYSLIPIDAEMIA
     Route: 048
     Dates: start: 20040517, end: 20040518

REACTIONS (4)
  - CHEILITIS [None]
  - LIP SLOUGHING [None]
  - PAIN [None]
  - SWELLING FACE [None]
